FAERS Safety Report 5395598-3 (Version None)
Quarter: 2007Q3

REPORT INFORMATION
  Report Type: 
  Country: None (occurrence: None)
  Receive Date: 20070724
  Receipt Date: 20070712
  Transmission Date: 20080115
  Serious: Yes (Other)
  Sender: FDA-Public Use
  Company Number: CA-ELI_LILLY_AND_COMPANY-CA200706002620

PATIENT
  Age: 60 Year
  Sex: Female

DRUGS (2)
  1. EVISTA [Suspect]
     Indication: OSTEOPOROSIS
     Dosage: UNK, UNK
     Dates: start: 20070101, end: 20070101
  2. EVISTA [Suspect]
     Dates: start: 20070101, end: 20070408

REACTIONS (10)
  - BACK PAIN [None]
  - CONTUSION [None]
  - DIVERTICULITIS [None]
  - FLUID RETENTION [None]
  - IRRITABLE BOWEL SYNDROME [None]
  - LUNG DISORDER [None]
  - OEDEMA PERIPHERAL [None]
  - PHLEBITIS [None]
  - URINARY RETENTION [None]
  - URINE OUTPUT DECREASED [None]
